FAERS Safety Report 25312066 (Version 1)
Quarter: 2025Q2

REPORT INFORMATION
  Report Type: Spontaneous
  Country: CN (occurrence: CN)
  Receive Date: 20250510
  Receipt Date: 20250510
  Transmission Date: 20250717
  Serious: Yes (Other)
  Sender: NOVO NORDISK
  Company Number: CN-NOVOPROD-1416274

PATIENT
  Age: 24 Year
  Sex: Male
  Weight: 81 kg

DRUGS (2)
  1. WEGOVY [Suspect]
     Active Substance: SEMAGLUTIDE
     Indication: Product used for unknown indication
  2. WEGOVY [Suspect]
     Active Substance: SEMAGLUTIDE

REACTIONS (4)
  - Hypoglycaemia [Recovered/Resolved]
  - Asthenia [Recovered/Resolved]
  - Nasopharyngitis [Recovered/Resolved]
  - Wrong technique in product usage process [Not Recovered/Not Resolved]

NARRATIVE: CASE EVENT DATE: 20250407
